FAERS Safety Report 7565597-1 (Version None)
Quarter: 2011Q2

REPORT INFORMATION
  Report Type: 
  Country: None (occurrence: None)
  Receive Date: 20110615
  Receipt Date: 20110609
  Transmission Date: 20111010
  Serious: Yes (Other)
  Sender: FDA-Public Use
  Company Number: 2011SP027356

PATIENT
  Age: 25 Year
  Sex: Female
  Weight: 58 kg

DRUGS (6)
  1. VENLAFAXINE [Concomitant]
  2. LAMOTRIGINE [Concomitant]
  3. QUETIAPINE [Concomitant]
  4. NUVARING [Suspect]
     Indication: CONTRACEPTION
     Dosage: ;QM;VAG
     Route: 067
     Dates: start: 20100501, end: 20110601
  5. MIDAZOLAM HCL [Concomitant]
  6. CLONAZEPAM [Concomitant]

REACTIONS (3)
  - INAPPROPRIATE SCHEDULE OF DRUG ADMINISTRATION [None]
  - PULMONARY TUBERCULOSIS [None]
  - METRORRHAGIA [None]
